FAERS Safety Report 17759534 (Version 1)
Quarter: 2020Q2

REPORT INFORMATION
  Report Type: Spontaneous
  Country: JP (occurrence: JP)
  Receive Date: 20200508
  Receipt Date: 20200508
  Transmission Date: 20200714
  Serious: Yes (Other)
  Sender: FDA-Public Use
  Company Number: NVSC2020JP123900

PATIENT
  Age: 54 Year
  Sex: Male

DRUGS (1)
  1. PREDNISOLONE. [Suspect]
     Active Substance: PREDNISOLONE
     Indication: DRUG REACTION WITH EOSINOPHILIA AND SYSTEMIC SYMPTOMS
     Dosage: 1.3 MG/KG, QD
     Route: 062

REACTIONS (4)
  - Epstein-Barr virus infection reactivation [Unknown]
  - Urticaria [Unknown]
  - Cytomegalovirus infection reactivation [Unknown]
  - Product use in unapproved indication [Unknown]
